FAERS Safety Report 4672991-5 (Version None)
Quarter: 2005Q2

REPORT INFORMATION
  Report Type: 
  Country: None (occurrence: None)
  Receive Date: 20050523
  Receipt Date: 20050411
  Transmission Date: 20051028
  Serious: Yes (Other)
  Sender: FDA-Public Use
  Company Number: 2005051095

PATIENT
  Age: 74 Year
  Sex: Female

DRUGS (2)
  1. DOXYCYCLINE [Suspect]
     Indication: COUGH
     Dosage: ORAL
     Route: 048
     Dates: start: 19850101, end: 20050325
  2. DOXYCYCLINE [Suspect]
     Indication: INFLUENZA
     Dosage: ORAL
     Route: 048
     Dates: start: 19850101, end: 20050325

REACTIONS (7)
  - ANAEMIA [None]
  - CARDIAC DISORDER [None]
  - ERYTHEMA [None]
  - HYPERSENSITIVITY [None]
  - PHARMACEUTICAL PRODUCT COMPLAINT [None]
  - SENSORY DISTURBANCE [None]
  - URTICARIA [None]
